FAERS Safety Report 10337430 (Version 4)
Quarter: 2015Q1

REPORT INFORMATION
  Report Type: Spontaneous
  Country: US (occurrence: US)
  Receive Date: 20140724
  Receipt Date: 20150213
  Transmission Date: 20150720
  Serious: Yes (Hospitalization, Other)
  Sender: FDA-Public Use
  Company Number: US-AMGEN-USASP2014054566

PATIENT
  Age: 57 Year
  Sex: Female

DRUGS (1)
  1. ENBREL [Suspect]
     Active Substance: ETANERCEPT
     Indication: RHEUMATOID ARTHRITIS
     Dosage: 50 MG, QWK
     Route: 065
     Dates: start: 19981127

REACTIONS (23)
  - Weight decreased [Recovered/Resolved]
  - Hospitalisation [Recovered/Resolved]
  - Spinal pain [Not Recovered/Not Resolved]
  - Drug resistance [Not Recovered/Not Resolved]
  - Arrhythmia [Not Recovered/Not Resolved]
  - Urinary tract infection [Not Recovered/Not Resolved]
  - Decreased appetite [Recovered/Resolved]
  - Back pain [Not Recovered/Not Resolved]
  - Spinal compression fracture [Not Recovered/Not Resolved]
  - Arthralgia [Not Recovered/Not Resolved]
  - Abdominal pain upper [Recovered/Resolved]
  - Thyroid mass [Recovered/Resolved]
  - Myalgia [Not Recovered/Not Resolved]
  - Blood pressure increased [Recovered/Resolved]
  - Scoliosis [Not Recovered/Not Resolved]
  - Posture abnormal [Not Recovered/Not Resolved]
  - Post procedural complication [Recovered/Resolved]
  - Lung neoplasm malignant [Recovered/Resolved]
  - Muscle rupture [Not Recovered/Not Resolved]
  - Pharyngitis [Recovered/Resolved]
  - Intervertebral disc injury [Not Recovered/Not Resolved]
  - Wrist surgery [Recovered/Resolved]
  - Sepsis [Not Recovered/Not Resolved]

NARRATIVE: CASE EVENT DATE: 1999
